FAERS Safety Report 11788544 (Version 1)
Quarter: 2015Q4

REPORT INFORMATION
  Report Type: Spontaneous
  Country: US (occurrence: None)
  Receive Date: 20151125
  Receipt Date: 20151125
  Transmission Date: 20160305
  Serious: No
  Sender: FDA-Public Use
  Company Number: None

PATIENT
  Age: 51 Year
  Sex: Male

DRUGS (3)
  1. TAFINLAR [Suspect]
     Active Substance: DABRAFENIB MESYLATE
     Indication: NEOPLASM MALIGNANT
     Route: 048
     Dates: start: 20151020
  2. MEKINIST [Suspect]
     Active Substance: TRAMETINIB DIMETHYL SULFOXIDE
     Indication: NEOPLASM MALIGNANT
     Route: 048
     Dates: start: 20151020
  3. DEXAMETHASON [Concomitant]
     Active Substance: DEXAMETHASONE

REACTIONS (4)
  - Therapy cessation [None]
  - Abdominal discomfort [None]
  - Surgery [None]
  - Erythema [None]

NARRATIVE: CASE EVENT DATE: 201511
